FAERS Safety Report 19840160 (Version 1)
Quarter: 2021Q3

REPORT INFORMATION
  Report Type: Spontaneous
  Country: CH (occurrence: CH)
  Receive Date: 20210915
  Receipt Date: 20210915
  Transmission Date: 20211014
  Serious: Yes (Other)
  Sender: FDA-Public Use
  Company Number: CH-PFIZER INC-202101140991

PATIENT
  Age: 50 Year
  Sex: Female

DRUGS (10)
  1. CYTOSAR [Suspect]
     Active Substance: CYTARABINE
     Indication: BLAST CRISIS IN MYELOGENOUS LEUKAEMIA
     Dosage: 200 MG/M2, 1X/DAY
     Route: 041
     Dates: start: 20210410, end: 20210416
  2. ACIDUM FOLICUM [Concomitant]
     Active Substance: FOLIC ACID
     Dosage: UNK
  3. VENETOCLAX. [Concomitant]
     Active Substance: VENETOCLAX
     Indication: B-CELL LYMPHOMA STAGE II
     Dosage: UNK
     Dates: start: 20210409, end: 20210505
  4. ZAVEDOS [Suspect]
     Active Substance: IDARUBICIN
     Indication: BLAST CRISIS IN MYELOGENOUS LEUKAEMIA
     Dosage: 12 MG/M2, 1X/DAY
     Route: 041
     Dates: start: 20210410, end: 20210416
  5. ICLUSIG [Concomitant]
     Active Substance: PONATINIB
     Dosage: UNK
  6. VITAMIN D3 STREULI [Concomitant]
     Active Substance: CHOLECALCIFEROL
     Dosage: UNK
  7. VALTREX [Concomitant]
     Active Substance: VALACYCLOVIR HYDROCHLORIDE
     Dosage: UNK
  8. CYMBALTA [Concomitant]
     Active Substance: DULOXETINE HYDROCHLORIDE
     Dosage: UNK
  9. TRIATEC [RAMIPRIL] [Concomitant]
     Active Substance: RAMIPRIL
     Dosage: UNK
  10. VITARUBIN [CYANOCOBALAMIN] [Concomitant]
     Dosage: UNK

REACTIONS (3)
  - Graft versus host disease in skin [Recovered/Resolved]
  - Pancytopenia [Unknown]
  - Drug eruption [Recovered/Resolved]

NARRATIVE: CASE EVENT DATE: 20210411
